FAERS Safety Report 19793208 (Version 1)
Quarter: 2021Q3

REPORT INFORMATION
  Report Type: Spontaneous
  Country: US (occurrence: US)
  Receive Date: 20210906
  Receipt Date: 20210906
  Transmission Date: 20211014
  Serious: Yes (Hospitalization, Other)
  Sender: FDA-Public Use
  Company Number: US-AAVISPHARMA-2021AP000013

PATIENT

DRUGS (7)
  1. MERPENEM [Interacting]
     Active Substance: MEROPENEM
  2. INTRAVENOUS SULFAMETHOXAZOLE?TRIMETHOPRIM (SMX?TMP) [Interacting]
     Active Substance: SULFAMETHOXAZOLE\TRIMETHOPRIM
     Route: 042
  3. HYDROXYCHLOROQUINE SULFATE. [Suspect]
     Active Substance: HYDROXYCHLOROQUINE SULFATE
     Indication: INTERSTITIAL LUNG DISEASE
     Dosage: UNKNOWN
     Route: 048
  4. AMIKACIN. [Interacting]
     Active Substance: AMIKACIN
     Dosage: UNKNOWN
  5. PREDNISONE. [Suspect]
     Active Substance: PREDNISONE
     Indication: INTERSTITIAL LUNG DISEASE
  6. IMIPENEM ? CILASTATIN [Interacting]
     Active Substance: CILASTATIN SODIUM\IMIPENEM
     Route: 042
  7. DOXYCYCLINE. [Interacting]
     Active Substance: DOXYCYCLINE

REACTIONS (1)
  - Nocardiosis [Recovering/Resolving]
